FAERS Safety Report 15205668 (Version 1)
Quarter: 2018Q3

REPORT INFORMATION
  Report Type: Other
  Country: IT (occurrence: IT)
  Receive Date: 20180727
  Receipt Date: 20180727
  Transmission Date: 20181010
  Serious: Yes (Hospitalization, Other)
  Sender: FDA-Public Use
  Company Number: IT-MACLEODS PHARMACEUTICALS US LTD-MAC2018015681

PATIENT

DRUGS (2)
  1. ESCITALOPRAM [Suspect]
     Active Substance: ESCITALOPRAM OXALATE
     Indication: SUICIDE ATTEMPT
     Dosage: 15 MILLILITER, SINGLE ABUSE / MISUSE
     Route: 048
     Dates: start: 20180708, end: 20180708
  2. DELORAZEPAM [Suspect]
     Active Substance: DELORAZEPAM
     Indication: SUICIDE ATTEMPT
     Dosage: 10 MILLILITER, SINGLE ABUSE / MISUSE
     Route: 048
     Dates: start: 20180708, end: 20180708

REACTIONS (1)
  - Drug abuser [Unknown]

NARRATIVE: CASE EVENT DATE: 20180708
